FAERS Safety Report 21124228 (Version 3)
Quarter: 2023Q2

REPORT INFORMATION
  Report Type: Report from Study
  Country: CA (occurrence: CA)
  Receive Date: 20220725
  Receipt Date: 20230504
  Transmission Date: 20230721
  Serious: Yes (Life-Threatening, Hospitalization, Other)
  Sender: FDA-Public Use
  Company Number: CA-CELLTRION INC.-2022CA011799

PATIENT

DRUGS (6)
  1. TRUXIMA [Suspect]
     Active Substance: RITUXIMAB-ABBS
     Indication: Vasculitis
     Dosage: 500 MILLIGRAM, INFUSION#4
     Route: 042
     Dates: start: 20210830
  2. TRUXIMA [Suspect]
     Active Substance: RITUXIMAB-ABBS
     Dosage: 500 MILLIGRAM
     Route: 042
     Dates: start: 20210831
  3. INSULIN NOS [Concomitant]
     Active Substance: INSULIN NOS
     Dosage: UNK
  4. METFORMIN [Concomitant]
     Active Substance: METFORMIN HYDROCHLORIDE
  5. JANUVIA [Concomitant]
     Active Substance: SITAGLIPTIN PHOSPHATE
  6. HYDROMORPHONE [Concomitant]
     Active Substance: HYDROMORPHONE

REACTIONS (8)
  - Ill-defined disorder [Unknown]
  - Condition aggravated [Unknown]
  - Hospitalisation [Unknown]
  - COVID-19 [Unknown]
  - Pneumonia [Not Recovered/Not Resolved]
  - Antibiotic therapy [Not Recovered/Not Resolved]
  - Pain [Unknown]
  - Intentional dose omission [Unknown]

NARRATIVE: CASE EVENT DATE: 20230131
